FAERS Safety Report 5369866-5 (Version None)
Quarter: 2007Q2

REPORT INFORMATION
  Report Type: 
  Country: None (occurrence: None)
  Receive Date: 20070621
  Receipt Date: 20070613
  Transmission Date: 20071010
  Serious: Yes (Hospitalization)
  Sender: FDA-Public Use
  Company Number: 2007SP011827

PATIENT
  Age: 50 Year
  Sex: Male

DRUGS (2)
  1. PEG-INTRON [Suspect]
     Indication: HEPATITIS C
     Dosage: 100 MCG; QW; SC
     Route: 058
     Dates: start: 20070210, end: 20070608
  2. REBETOL [Suspect]
     Indication: HEPATITIS C
     Dosage: 800 MG; PO
     Route: 048
     Dates: start: 20070210, end: 20070608

REACTIONS (3)
  - BILE DUCT STONE [None]
  - CHOLELITHIASIS [None]
  - JAUNDICE [None]
